FAERS Safety Report 14406554 (Version 6)
Quarter: 2018Q3

REPORT INFORMATION
  Report Type: Spontaneous
  Country: JP (occurrence: JP)
  Receive Date: 20180118
  Receipt Date: 20180801
  Transmission Date: 20181010
  Serious: Yes (Hospitalization)
  Sender: FDA-Public Use
  Company Number: JP-ABBVIE-17K-087-2204910-00

PATIENT
  Age: 28 Year
  Sex: Female
  Weight: 51 kg

DRUGS (6)
  1. HUMIRA [Suspect]
     Active Substance: ADALIMUMAB
     Indication: COLITIS ULCERATIVE
     Route: 058
     Dates: start: 20160701, end: 20160701
  2. HUMIRA [Suspect]
     Active Substance: ADALIMUMAB
     Route: 058
     Dates: start: 20160715, end: 20160715
  3. RITODRINE HYDROCHLORIDE [Concomitant]
     Active Substance: RITODRINE HYDROCHLORIDE
     Indication: PREMATURE LABOUR
     Route: 048
     Dates: start: 20171125
  4. HUMIRA [Suspect]
     Active Substance: ADALIMUMAB
     Route: 058
     Dates: start: 20160729
  5. ISOXSUPRINE HYDROCHLORIDE. [Concomitant]
     Active Substance: ISOXSUPRINE HYDROCHLORIDE
     Indication: PREMATURE LABOUR
     Route: 048
     Dates: start: 20171006, end: 20171124
  6. TOKISHAKUYAKUSAN [Concomitant]
     Active Substance: HERBALS
     Indication: PREMATURE LABOUR
     Route: 048
     Dates: start: 20171125

REACTIONS (4)
  - Anaemia [Unknown]
  - Premature labour [Recovered/Resolved]
  - Live birth [Unknown]
  - Exposure during pregnancy [Unknown]

NARRATIVE: CASE EVENT DATE: 20171124
